FAERS Safety Report 7863866-9 (Version None)
Quarter: 2011Q4

REPORT INFORMATION
  Report Type: 
  Country: None (occurrence: None)
  Receive Date: 20111028
  Receipt Date: 20111019
  Transmission Date: 20120403
  Serious: No
  Sender: FDA-Public Use
  Company Number: US-BIOGENIDEC-2011BI036334

PATIENT
  Sex: Female

DRUGS (6)
  1. NEUROTNIN [Concomitant]
     Indication: NEURALGIA
  2. VIMPAT [Concomitant]
     Indication: NEURALGIA
  3. TYSABRI [Suspect]
     Indication: MULTIPLE SCLEROSIS
     Route: 042
     Dates: start: 20100621
  4. LORTAB [Concomitant]
     Indication: MUSCULOSKELETAL STIFFNESS
  5. BLOOD PRESSURE MED (NOS) [Concomitant]
  6. LORTAB [Concomitant]
     Indication: PAIN

REACTIONS (11)
  - VISUAL FIELD DEFECT [None]
  - URINARY TRACT INFECTION [None]
  - ASTHENIA [None]
  - HEART RATE DECREASED [None]
  - WEIGHT DECREASED [None]
  - NERVOUSNESS [None]
  - PAIN IN EXTREMITY [None]
  - VISION BLURRED [None]
  - FATIGUE [None]
  - POOR QUALITY SLEEP [None]
  - EYE DISORDER [None]
